FAERS Safety Report 25708585 (Version 1)
Quarter: 2025Q3

REPORT INFORMATION
  Report Type: Spontaneous
  Country: US (occurrence: US)
  Receive Date: 20250821
  Receipt Date: 20250821
  Transmission Date: 20251020
  Serious: No
  Sender: ASTELLAS
  Company Number: US-ASTELLAS-2025-AER-019648

PATIENT
  Age: 93 Year
  Sex: Male
  Weight: 77 kg

DRUGS (23)
  1. PADCEV [Suspect]
     Active Substance: ENFORTUMAB VEDOTIN-EJFV
     Indication: Bladder cancer
     Dosage: SECOND INFUSION?ONCE WEEK FOR 2 WEEKS THEN A WEEK OFF
     Route: 042
     Dates: start: 20250226
  2. PADCEV [Suspect]
     Active Substance: ENFORTUMAB VEDOTIN-EJFV
     Indication: Transitional cell carcinoma
     Dosage: THIRD INFUSION?ONCE WEEK FOR 2 WEEKS THEN A WEEK OFF
     Route: 042
     Dates: start: 20250312
  3. PADCEV [Suspect]
     Active Substance: ENFORTUMAB VEDOTIN-EJFV
     Dosage: FOURTH INFUSION WITHDRAWN (CANCELLED)?ONCE WEEK FOR 2 WEEKS THEN A WEEK OFF
     Route: 042
     Dates: start: 20250319
  4. PADCEV [Suspect]
     Active Substance: ENFORTUMAB VEDOTIN-EJFV
     Dosage: FIFTH INFUSION?ONCE WEEK FOR 2 WEEKS THEN A WEEK OFF
     Route: 042
     Dates: start: 20250423
  5. PADCEV [Suspect]
     Active Substance: ENFORTUMAB VEDOTIN-EJFV
     Dosage: SIXTH INFUSION?ONCE WEEK FOR 2 WEEKS THEN A WEEK OFF
     Route: 042
     Dates: start: 20250430
  6. PADCEV [Suspect]
     Active Substance: ENFORTUMAB VEDOTIN-EJFV
     Dosage: SEVENTH INFUSION?ONCE WEEK FOR 2 WEEKS THEN A WEEK OFF
     Route: 042
     Dates: start: 20250514, end: 202505
  7. PADCEV [Suspect]
     Active Substance: ENFORTUMAB VEDOTIN-EJFV
     Dosage: FIRST INFUSION?ONCE WEEK FOR 2 WEEKS THEN A WEEK OFF
     Route: 042
     Dates: start: 20250219
  8. FLOMAX [Concomitant]
     Active Substance: TAMSULOSIN HYDROCHLORIDE
     Indication: Product used for unknown indication
     Dosage: TAKE IN EVENING
     Route: 065
  9. LIPITOR [Concomitant]
     Active Substance: ATORVASTATIN CALCIUM
     Indication: Product used for unknown indication
     Route: 065
  10. Preservision eye vitamin and mineral supplement AREDS 2 [Concomitant]
     Indication: Product used for unknown indication
     Dosage: 1 TABS/PER DAY WITH MEAL
     Route: 065
  11. metoprolol socc. [Concomitant]
     Indication: Product used for unknown indication
     Route: 065
     Dates: end: 20250519
  12. METFORMIN [Concomitant]
     Active Substance: METFORMIN HYDROCHLORIDE
     Indication: Product used for unknown indication
     Route: 065
  13. LEVOTHYROXINE [Concomitant]
     Active Substance: LEVOTHYROXINE
     Indication: Product used for unknown indication
     Route: 065
  14. METANX [Concomitant]
     Active Substance: LEVOMEFOLATE CALCIUM\METHYLCOBALAMIN\PYRIDOXAL PHOSPHATE ANHYDROUS
     Indication: Product used for unknown indication
     Dosage: HIGH DOSE FOLIC ACID
     Route: 065
  15. ALLOPURINOL [Concomitant]
     Active Substance: ALLOPURINOL
     Indication: Product used for unknown indication
     Route: 065
  16. ORGOVYX [Concomitant]
     Active Substance: RELUGOLIX
     Indication: Prostate cancer
     Dosage: MORNING
     Route: 065
     Dates: start: 20241122
  17. Keytruda immunotherapy [Concomitant]
     Indication: Bladder cancer
     Route: 065
     Dates: start: 20241118, end: 20250120
  18. NAPHAZOLINE HYDROCHLORIDE [Concomitant]
     Active Substance: NAPHAZOLINE HYDROCHLORIDE
     Indication: Dry eye
     Route: 065
  19. TYLENOL [Concomitant]
     Active Substance: ACETAMINOPHEN
     Indication: Pain
     Route: 065
  20. ASCORBIC ACID [Concomitant]
     Active Substance: ASCORBIC ACID
     Indication: Product used for unknown indication
     Dosage: GUMMY
     Route: 065
  21. VITAMIN D3 [Concomitant]
     Active Substance: CHOLECALCIFEROL
     Indication: Product used for unknown indication
     Route: 065
  22. ASPIRIN [Concomitant]
     Active Substance: ASPIRIN
     Indication: Product used for unknown indication
     Dosage: COATED
     Route: 065
  23. MAGNESIUM OXIDE [Concomitant]
     Active Substance: MAGNESIUM OXIDE
     Indication: Muscle spasms
     Route: 065

REACTIONS (1)
  - Rash [Recovering/Resolving]

NARRATIVE: CASE EVENT DATE: 20250301
